FAERS Safety Report 14613642 (Version 1)
Quarter: 2018Q1

REPORT INFORMATION
  Report Type: Spontaneous
  Country: US (occurrence: US)
  Receive Date: 20180308
  Receipt Date: 20180308
  Transmission Date: 20180509
  Serious: Yes (Death)
  Sender: FDA-Public Use
  Company Number: None

PATIENT
  Age: 65 Year
  Sex: Female
  Weight: 107.05 kg

DRUGS (14)
  1. VITAMIN D3 [Concomitant]
     Active Substance: CHOLECALCIFEROL
  2. FOLIC ACID. [Concomitant]
     Active Substance: FOLIC ACID
  3. LISINOPRIL. [Concomitant]
     Active Substance: LISINOPRIL
  4. ZOFRAN [Concomitant]
     Active Substance: ONDANSETRON HYDROCHLORIDE
  5. NORCO [Concomitant]
     Active Substance: ACETAMINOPHEN\HYDROCODONE BITARTRATE
  6. POTASSIUM [Concomitant]
     Active Substance: POTASSIUM
  7. LORAZEPAM. [Concomitant]
     Active Substance: LORAZEPAM
  8. ATENOLOL. [Concomitant]
     Active Substance: ATENOLOL
  9. PRILOSEC [Concomitant]
     Active Substance: OMEPRAZOLE MAGNESIUM
  10. REGORAFENIB [Suspect]
     Active Substance: REGORAFENIB
     Indication: RECTAL CANCER METASTATIC
     Dosage: FREQUENCY - DAILY ON DAYS 1-21
     Route: 048
     Dates: start: 20170616, end: 20180215
  11. TYLENOL [Concomitant]
     Active Substance: ACETAMINOPHEN
  12. MAGNESIUM OXIDE. [Concomitant]
     Active Substance: MAGNESIUM OXIDE
  13. SIMVASTATIN. [Concomitant]
     Active Substance: SIMVASTATIN
  14. WARFARIN [Concomitant]
     Active Substance: WARFARIN

REACTIONS (2)
  - Malignant neoplasm progression [None]
  - Rectal cancer [None]

NARRATIVE: CASE EVENT DATE: 20180305
